FAERS Safety Report 21675329 (Version 1)
Quarter: 2022Q4

REPORT INFORMATION
  Report Type: Spontaneous
  Country: US (occurrence: None)
  Receive Date: 20221202
  Receipt Date: 20221202
  Transmission Date: 20230113
  Serious: No
  Sender: FDA-Public Use
  Company Number: None

PATIENT
  Sex: Female

DRUGS (4)
  1. AMBRISENTAN [Suspect]
     Active Substance: AMBRISENTAN
     Indication: Chronic myeloid leukaemia
  2. ICLUSIG [Concomitant]
     Active Substance: PONATINIB
  3. REVLIMID [Concomitant]
     Active Substance: LENALIDOMIDE
  4. SPRYCEL [Concomitant]
     Active Substance: DASATINIB

REACTIONS (5)
  - Fatigue [None]
  - Feeling hot [None]
  - Hyperhidrosis [None]
  - Muscle spasms [None]
  - Bronchitis [None]
